FAERS Safety Report 9411707 (Version 1)
Quarter: 2013Q3

REPORT INFORMATION
  Report Type: Spontaneous
  Country: US (occurrence: US)
  Receive Date: 20130722
  Receipt Date: 20130722
  Transmission Date: 20140515
  Serious: No
  Sender: FDA-Public Use
  Company Number: US-COVIDIEN/TYCO HEALTHCARE/MALLINCKRODT-T201204224

PATIENT
  Sex: Female

DRUGS (4)
  1. MORPHINE EXTENDED-RELEASE [Suspect]
     Indication: PRODUCT USED FOR UNKNOWN INDICATION
     Dosage: 30 MG, Q 8 HOURS.
  2. MORPHINE EXTENDED-RELEASE [Suspect]
     Dosage: 15 MG, Q 8 HOURS
  3. ZANAFLEX [Concomitant]
  4. LACTATE [Concomitant]

REACTIONS (1)
  - Flatulence [Unknown]
